FAERS Safety Report 8042154-4 (Version None)
Quarter: 2012Q1

REPORT INFORMATION
  Report Type: 
  Country: None (occurrence: None)
  Receive Date: 20120112
  Receipt Date: 20120111
  Transmission Date: 20120608
  Serious: Yes (Other)
  Sender: FDA-Public Use
  Company Number: KR-BAYER-2012-003484

PATIENT
  Sex: Female

DRUGS (2)
  1. YASMIN [Suspect]
     Indication: DYSMENORRHOEA
  2. YASMIN [Suspect]
     Indication: MENSTRUAL CYCLE MANAGEMENT
     Dosage: UNK

REACTIONS (1)
  - BLOOD THYROID STIMULATING HORMONE INCREASED [None]
